FAERS Safety Report 5226997-8 (Version None)
Quarter: 2007Q1

REPORT INFORMATION
  Report Type: 
  Country: None (occurrence: None)
  Receive Date: 20070202
  Receipt Date: 20070126
  Transmission Date: 20070707
  Serious: Yes (Other)
  Sender: FDA-Public Use
  Company Number: US-BRISTOL-MYERS SQUIBB COMPANY-13608401

PATIENT
  Age: 35 Year
  Sex: Female

DRUGS (3)
  1. DEFINITY [Suspect]
     Indication: STRESS ECHOCARDIOGRAM
     Dosage: DILUTED IV BOLUS- 5 MG X 2
     Route: 040
     Dates: start: 20060224, end: 20060224
  2. HYDROCODONE BITARTRATE [Concomitant]
  3. OXAPROZIN [Concomitant]

REACTIONS (5)
  - ANAPHYLACTIC REACTION [None]
  - DYSPNOEA [None]
  - LIP SWELLING [None]
  - RESPIRATORY DISTRESS [None]
  - SWOLLEN TONGUE [None]
